FAERS Safety Report 14738811 (Version 2)
Quarter: 2018Q2

REPORT INFORMATION
  Report Type: Report from Study
  Country: None (occurrence: CO)
  Receive Date: 20180409
  Receipt Date: 20180427
  Transmission Date: 20180711
  Serious: Yes (Hospitalization, Other)
  Sender: FDA-Public Use
  Company Number: CO-ABBVIE-18K-036-2316220-00

PATIENT
  Age: 67 Year
  Sex: Male

DRUGS (1)
  1. HUMIRA [Suspect]
     Active Substance: ADALIMUMAB
     Indication: PSORIASIS
     Route: 058
     Dates: start: 20120830, end: 20170820

REACTIONS (7)
  - Gait disturbance [Recovering/Resolving]
  - Epilepsy [Recovering/Resolving]
  - Balance disorder [Recovering/Resolving]
  - Brain scan abnormal [Unknown]
  - Musculoskeletal disorder [Recovering/Resolving]
  - Muscular weakness [Recovering/Resolving]
  - Surgery [Recovering/Resolving]

NARRATIVE: CASE EVENT DATE: 20180117
